FAERS Safety Report 24409152 (Version 2)
Quarter: 2024Q4

REPORT INFORMATION
  Report Type: Spontaneous
  Country: FR (occurrence: FR)
  Receive Date: 20241008
  Receipt Date: 20241028
  Transmission Date: 20250115
  Serious: Yes (Hospitalization)
  Sender: JOHNSON AND JOHNSON
  Company Number: None

PATIENT
  Age: 47 Year
  Sex: Male
  Weight: 150 kg

DRUGS (17)
  1. SPRAVATO [Suspect]
     Active Substance: ESKETAMINE
     Indication: Depression
     Dates: start: 20240424, end: 20240827
  2. DOXYCYCLINE [Concomitant]
     Active Substance: DOXYCYCLINE
     Route: 065
  3. CYAMEMAZINE [Concomitant]
     Active Substance: CYAMEMAZINE
     Route: 065
  4. EPLERENONE [Concomitant]
     Active Substance: EPLERENONE
     Route: 065
  5. DAIVONEX [Concomitant]
     Active Substance: CALCIPOTRIENE
     Route: 065
  6. LOCOID [Concomitant]
     Active Substance: HYDROCORTISONE BUTYRATE
     Route: 065
  7. ALPRAZOLAM [Concomitant]
     Active Substance: ALPRAZOLAM
     Route: 065
  8. CETIRIZINE HYDROCHLORIDE [Concomitant]
     Active Substance: CETIRIZINE HYDROCHLORIDE
     Route: 065
  9. ZOPICLONE [Concomitant]
     Active Substance: ZOPICLONE
  10. DAPAGLIFLOZIN [Concomitant]
     Active Substance: DAPAGLIFLOZIN
     Route: 065
  11. LAMOTRIGINE [Concomitant]
     Active Substance: LAMOTRIGINE
  12. ENTRESTO [Concomitant]
     Active Substance: SACUBITRIL\VALSARTAN
     Route: 065
  13. ATORVASTATIN [Concomitant]
     Active Substance: ATORVASTATIN
     Route: 065
  14. MIRTAZAPINE [Concomitant]
     Active Substance: MIRTAZAPINE
     Route: 065
  15. CLOMIPRAMINE HYDROCHLORIDE [Concomitant]
     Active Substance: CLOMIPRAMINE HYDROCHLORIDE
     Route: 065
  16. BISOPROLOL [Concomitant]
     Active Substance: BISOPROLOL\BISOPROLOL FUMARATE
     Route: 065
  17. FOLIC ACID [Concomitant]
     Active Substance: FOLIC ACID
     Route: 065

REACTIONS (1)
  - Transient ischaemic attack [Recovered/Resolved]

NARRATIVE: CASE EVENT DATE: 20240905
